FAERS Safety Report 8860537 (Version 1)
Quarter: 2012Q4

REPORT INFORMATION
  Report Type: 
  Country: US (occurrence: US)
  Receive Date: 20121025
  Receipt Date: 20121025
  Transmission Date: 20130627
  Serious: Yes (Other)
  Sender: FDA-Public Use
  Company Number: US-TEVA-292589USA

PATIENT
  Sex: Female

DRUGS (1)
  1. METHOTREXATE [Suspect]
     Indication: RHEUMATOID ARTHRITIS
     Dosage: 1.4286 Milligram Daily;

REACTIONS (4)
  - Rheumatoid arthritis [Unknown]
  - Alopecia [Recovering/Resolving]
  - Pain [Unknown]
  - Therapeutic response unexpected with drug substitution [Unknown]
